FAERS Safety Report 5648838-7 (Version None)
Quarter: 2008Q1

REPORT INFORMATION
  Report Type: 
  Country: None (occurrence: None)
  Receive Date: 20080304
  Receipt Date: 20080229
  Transmission Date: 20080703
  Serious: Yes (Hospitalization)
  Sender: FDA-Public Use
  Company Number: PL-ASTRAZENECA-2008SE01135

PATIENT
  Age: 10957 Day
  Sex: Female
  Weight: 83 kg

DRUGS (6)
  1. XYLOCAINE [Suspect]
     Indication: ANALGESIA
     Dates: start: 20080219, end: 20080219
  2. XYLOCAINE [Suspect]
     Indication: TONSILLECTOMY
     Dates: start: 20080219, end: 20080219
  3. ADRENALINE [Concomitant]
     Indication: ANALGESIA
     Dosage: 2 DROPLETS
     Dates: start: 20080219, end: 20080219
  4. DOLCONTRAL [Concomitant]
     Indication: PREMEDICATION
     Route: 030
     Dates: start: 20080219, end: 20080219
  5. HYDROXIZINE [Concomitant]
     Indication: PREMEDICATION
     Route: 030
     Dates: start: 20080219, end: 20080219
  6. ATROPINE [Concomitant]
     Indication: PREMEDICATION
     Route: 030
     Dates: start: 20080219, end: 20080219

REACTIONS (2)
  - CONVULSION [None]
  - LOSS OF CONSCIOUSNESS [None]
